FAERS Safety Report 16482317 (Version 1)
Quarter: 2019Q2

REPORT INFORMATION
  Report Type: Report from Study
  Country: CA (occurrence: CA)
  Receive Date: 20190627
  Receipt Date: 20190627
  Transmission Date: 20190711
  Serious: Yes (Death, Hospitalization)
  Sender: FDA-Public Use
  Company Number: CA-ROCHE-2343688

PATIENT
  Age: 65 Year
  Sex: Male
  Weight: 100 kg

DRUGS (11)
  1. LAMOTRIGINE. [Concomitant]
     Active Substance: LAMOTRIGINE
     Dosage: ONGOING
     Route: 065
     Dates: start: 201804
  2. RAMIPRIL. [Concomitant]
     Active Substance: RAMIPRIL
  3. FENOFIBRATE. [Concomitant]
     Active Substance: FENOFIBRATE
     Dosage: ONGOING
     Route: 065
     Dates: start: 199909
  4. RIVAROXABAN [Concomitant]
     Active Substance: RIVAROXABAN
     Dosage: ONGOING
     Route: 065
     Dates: start: 20190221
  5. METOPROLOL. [Concomitant]
     Active Substance: METOPROLOL
  6. ZOPICLONE [Concomitant]
     Active Substance: ZOPICLONE
  7. RANITIDINE. [Concomitant]
     Active Substance: RANITIDINE
     Dosage: ONGOING
     Route: 065
     Dates: start: 20190215
  8. MIDAZOLAM [Concomitant]
     Active Substance: MIDAZOLAM HYDROCHLORIDE
  9. BEVACIZUMAB. [Suspect]
     Active Substance: BEVACIZUMAB
     Indication: GLIOBLASTOMA MULTIFORME
     Route: 042
     Dates: start: 20190228
  10. ROSUVASTATIN. [Concomitant]
     Active Substance: ROSUVASTATIN
     Route: 065
     Dates: start: 199909
  11. DEXAMETHASONE. [Concomitant]
     Active Substance: DEXAMETHASONE
     Route: 065
     Dates: start: 20190409

REACTIONS (3)
  - Hypotension [Not Recovered/Not Resolved]
  - Abdominal pain [Not Recovered/Not Resolved]
  - Septic shock [Fatal]

NARRATIVE: CASE EVENT DATE: 20190603
